FAERS Safety Report 17200674 (Version 4)
Quarter: 2022Q4

REPORT INFORMATION
  Report Type: Spontaneous
  Country: PT (occurrence: PT)
  Receive Date: 20191226
  Receipt Date: 20221114
  Transmission Date: 20230112
  Serious: Yes (Life-Threatening, Hospitalization, Disabling, Other)
  Sender: FDA-Public Use
  Company Number: None

PATIENT
  Age: 67 Year
  Sex: Female

DRUGS (9)
  1. SIMVASTATIN [Interacting]
     Active Substance: SIMVASTATIN
     Indication: Dyslipidaemia
     Route: 048
     Dates: start: 2017, end: 2018
  2. CLARITHROMYCIN [Interacting]
     Active Substance: CLARITHROMYCIN
     Indication: Skin bacterial infection
     Dosage: IN JUNE
     Dates: start: 201806, end: 2018
  3. CIPROFLOXACIN [Interacting]
     Active Substance: CIPROFLOXACIN
     Indication: Skin bacterial infection
     Dosage: IN JUNE
     Dates: start: 201806, end: 2018
  4. GLICLAZIDE [Concomitant]
     Active Substance: GLICLAZIDE
     Indication: Type 2 diabetes mellitus
  5. METFORMIN [Concomitant]
     Active Substance: METFORMIN HYDROCHLORIDE
     Indication: Type 2 diabetes mellitus
  6. WARFARIN [Concomitant]
     Active Substance: WARFARIN
     Indication: Type 2 diabetes mellitus
  7. FUROSEMIDE [Concomitant]
     Active Substance: FUROSEMIDE
     Indication: Hypertension
  8. ENALAPRIL [Concomitant]
     Active Substance: ENALAPRIL
     Indication: Hypertension
  9. SIMVASTATIN [Interacting]
     Active Substance: SIMVASTATIN
     Indication: Dyslipidaemia
     Dosage: REINTRODUCED AND LATER SUSPENDED
     Route: 048
     Dates: start: 2018

REACTIONS (19)
  - Potentiating drug interaction [Unknown]
  - Acute kidney injury [Recovered/Resolved]
  - Rhabdomyolysis [Recovered/Resolved]
  - Myalgia [Recovered/Resolved]
  - Quadriparesis [Recovering/Resolving]
  - Mycobacterium chelonae infection [Not Recovered/Not Resolved]
  - Diarrhoea [Recovered/Resolved]
  - Myositis [Unknown]
  - Nausea [Recovered/Resolved]
  - Oedema peripheral [Recovered/Resolved]
  - Muscular weakness [Recovered/Resolved]
  - Hepatic cytolysis [Recovered/Resolved]
  - Myopathy [Recovering/Resolving]
  - Metabolic acidosis [Recovered/Resolved]
  - Hyperkalaemia [Recovered/Resolved]
  - Skin bacterial infection [Not Recovered/Not Resolved]
  - Labelled drug-drug interaction medication error [Unknown]
  - Contraindicated product administered [Unknown]
  - Drug interaction [Unknown]

NARRATIVE: CASE EVENT DATE: 20180101
